FAERS Safety Report 9280867 (Version 1)
Quarter: 2013Q2

REPORT INFORMATION
  Report Type: Spontaneous
  Country: CM (occurrence: None)
  Receive Date: 20130503
  Receipt Date: 20130503
  Transmission Date: 20140414
  Serious: Yes (Hospitalization)
  Sender: FDA-Public Use
  Company Number: 2013P1005183

PATIENT
  Age: 25 Year
  Sex: Male

DRUGS (4)
  1. ALBENDAZOLE [Suspect]
     Indication: FILARIASIS LYMPHATIC
     Dates: start: 20120911
  2. ALBENDAZOLE [Suspect]
     Indication: ONCHOCERCIASIS
     Dates: start: 20120911
  3. MECTIZAN [Suspect]
     Indication: FILARIASIS LYMPHATIC
     Dates: start: 20120911
  4. MECTIZAN [Suspect]
     Indication: ONCHOCERCIASIS
     Dates: start: 20120911

REACTIONS (3)
  - Coma [None]
  - Asthenia [None]
  - Alcohol poisoning [None]
